FAERS Safety Report 9950581 (Version 1)
Quarter: 2014Q1

REPORT INFORMATION
  Report Type: Report from Study
  Country: US (occurrence: US)
  Receive Date: 20140304
  Receipt Date: 20140304
  Transmission Date: 20141002
  Serious: No
  Sender: FDA-Public Use
  Company Number: US-ABBVIE-13P-163-1069669-00

PATIENT
  Age: 52 Year
  Sex: Female
  Weight: 83.99 kg

DRUGS (5)
  1. HUMIRA [Suspect]
     Indication: PULMONARY SARCOIDOSIS
     Route: 058
     Dates: start: 20130305
  2. METHOTREXATE [Concomitant]
     Indication: PULMONARY SARCOIDOSIS
     Dosage: 2 TABLETS WEEKLY
  3. FOLIC ACID [Concomitant]
     Indication: VITAMIN SUPPLEMENTATION
  4. MULTIVITAMINS [Concomitant]
     Indication: PULMONARY SARCOIDOSIS
  5. METOPROLOL [Concomitant]
     Indication: HYPERTENSION
     Route: 048

REACTIONS (2)
  - Off label use [Unknown]
  - Nasopharyngitis [Recovering/Resolving]
